FAERS Safety Report 5288157-4 (Version None)
Quarter: 2007Q2

REPORT INFORMATION
  Report Type: 
  Country: None (occurrence: None)
  Receive Date: 20070405
  Receipt Date: 20070330
  Transmission Date: 20071010
  Serious: No
  Sender: FDA-Public Use
  Company Number: 2006UW07834

PATIENT
  Age: 755 Month
  Sex: Male
  Weight: 99.1 kg

DRUGS (4)
  1. SEROQUEL [Suspect]
     Indication: DEPRESSION
     Route: 048
     Dates: start: 20000101, end: 20040101
  2. SEROQUEL [Suspect]
     Indication: ANXIETY
     Route: 048
     Dates: start: 20000101, end: 20040101
  3. SEROQUEL [Suspect]
     Route: 048
     Dates: start: 20040214, end: 20050101
  4. SEROQUEL [Suspect]
     Route: 048
     Dates: start: 20040214, end: 20050101

REACTIONS (1)
  - DIABETES MELLITUS [None]
